APPROVED DRUG PRODUCT: LOTRONEX
Active Ingredient: ALOSETRON HYDROCHLORIDE
Strength: EQ 1MG BASE
Dosage Form/Route: TABLET;ORAL
Application: N021107 | Product #001 | TE Code: AB
Applicant: LEGACY PHARMA INC
Approved: Feb 9, 2000 | RLD: Yes | RS: Yes | Type: RX